FAERS Safety Report 7250990-7 (Version None)
Quarter: 2011Q1

REPORT INFORMATION
  Report Type: 
  Country: None (occurrence: None)
  Receive Date: 20110128
  Receipt Date: 20110117
  Transmission Date: 20110831
  Serious: Yes (Hospitalization)
  Sender: FDA-Public Use
  Company Number: B0693874A

PATIENT
  Sex: Female

DRUGS (9)
  1. CRESTOR [Concomitant]
     Route: 065
  2. EVISTA [Concomitant]
     Route: 065
  3. NOCTRAN [Concomitant]
     Route: 065
  4. STAGID [Concomitant]
     Route: 065
  5. ALTEIS [Concomitant]
     Route: 065
  6. ARIXTRA [Suspect]
     Indication: THROMBOSIS PROPHYLAXIS
     Dosage: 2.5MG PER DAY
     Route: 058
     Dates: start: 20101105, end: 20101202
  7. RIVOTRIL [Concomitant]
     Route: 065
  8. KARDEGIC [Concomitant]
     Route: 065
  9. ANALGESIC [Concomitant]

REACTIONS (11)
  - PERINEAL HAEMATOMA [None]
  - HAEMOGLOBIN DECREASED [None]
  - PALLOR [None]
  - HYPOTENSION [None]
  - INDURATION [None]
  - ABDOMINAL PAIN [None]
  - MUSCLE HAEMORRHAGE [None]
  - PELVIC HAEMATOMA [None]
  - DIZZINESS [None]
  - PROTHROMBIN LEVEL DECREASED [None]
  - TACHYCARDIA [None]
